FAERS Safety Report 8560811-8 (Version None)
Quarter: 2012Q3

REPORT INFORMATION
  Report Type: 
  Country: None (occurrence: None)
  Receive Date: 20120802
  Receipt Date: 20120724
  Transmission Date: 20120928
  Serious: Yes (Other)
  Sender: FDA-Public Use
  Company Number: US-ASTRAZENECA-2010SE46430

PATIENT
  Age: 89 Year
  Sex: Female

DRUGS (10)
  1. CRESTOR [Suspect]
     Dosage: 40MG, ON THE DAYS NOT TAKING THE 20MG DOSE.
     Route: 048
  2. MOBIC [Concomitant]
     Indication: ARTHRITIS
  3. LYRICA [Concomitant]
     Indication: CARDIAC DISORDER
  4. NEXIUM [Suspect]
     Route: 048
  5. LIPITOR [Concomitant]
  6. CRESTOR [Suspect]
     Indication: HYPERCHOLESTEROLAEMIA
     Route: 048
  7. CRESTOR [Suspect]
     Indication: HYPERLIPIDAEMIA
     Route: 048
  8. CRESTOR [Suspect]
     Dosage: 40MG, ON THE DAYS NOT TAKING THE 20MG DOSE.
     Route: 048
  9. CRESTOR [Suspect]
     Route: 048
  10. CRESTOR [Suspect]
     Route: 048

REACTIONS (6)
  - HIP FRACTURE [None]
  - MEMORY IMPAIRMENT [None]
  - ARTHRITIS [None]
  - ASTHENIA [None]
  - FALL [None]
  - BACK PAIN [None]
